FAERS Safety Report 20200619 (Version 1)
Quarter: 2021Q4

REPORT INFORMATION
  Report Type: Spontaneous
  Country: US (occurrence: US)
  Receive Date: 20211217
  Receipt Date: 20211217
  Transmission Date: 20220303
  Serious: Yes (Other)
  Sender: FDA-Public Use
  Company Number: US-VIRTUS PHARMACEUTICALS, LLC-2021VTS00063

PATIENT
  Age: 52 Year
  Sex: Female

DRUGS (7)
  1. LEVETIRACETAM [Suspect]
     Active Substance: LEVETIRACETAM
     Indication: Status epilepticus
     Dosage: 1000 MG
     Route: 065
  2. LEVETIRACETAM [Suspect]
     Active Substance: LEVETIRACETAM
     Dosage: 1500 MG, 2X/DAY
     Route: 065
  3. LEVETIRACETAM [Suspect]
     Active Substance: LEVETIRACETAM
     Dosage: 500 MG, 2X/DAY AND 500 MG AFTER HEMODIALYSIS
     Route: 065
  4. PROPOFOL [Concomitant]
     Active Substance: PROPOFOL
     Dosage: 60 ?G/KG/MIN
     Route: 065
  5. DEXMEDETOMIDINE [Concomitant]
     Active Substance: DEXMEDETOMIDINE
     Route: 065
  6. LORAZEPAM [Concomitant]
     Active Substance: LORAZEPAM
     Indication: Status epilepticus
     Dosage: 6 MG, ONCE
     Route: 042
  7. LACOSAMIDE [Concomitant]
     Active Substance: LACOSAMIDE
     Dosage: 200 MG, 2X/DAY
     Route: 065

REACTIONS (2)
  - Myoclonus [Recovered/Resolved]
  - Toxicity to various agents [Recovered/Resolved]
